FAERS Safety Report 18987707 (Version 13)
Quarter: 2022Q1

REPORT INFORMATION
  Report Type: Report from Study
  Country: FR (occurrence: FR)
  Receive Date: 20210309
  Receipt Date: 20220314
  Transmission Date: 20220423
  Serious: Yes (Hospitalization, Other)
  Sender: FDA-Public Use
  Company Number: FR-JNJFOC-20210205498

PATIENT
  Age: 34 Year
  Sex: Female

DRUGS (18)
  1. SPRAVATO [Suspect]
     Active Substance: ESKETAMINE
     Indication: Depression
     Dosage: 56 MG, 5 TOTAL DOSES
     Dates: start: 20201229, end: 20210226
  2. SPRAVATO [Suspect]
     Active Substance: ESKETAMINE
     Dosage: 84 MG, 16 TOTAL DOSES
     Dates: start: 20210301, end: 20210416
  3. SPRAVATO [Suspect]
     Active Substance: ESKETAMINE
     Dates: start: 20210416, end: 20210430
  4. SPRAVATO [Suspect]
     Active Substance: ESKETAMINE
     Dates: start: 20210226, end: 20210301
  5. SPRAVATO [Suspect]
     Active Substance: ESKETAMINE
     Dosage: REINTRODUCTION
     Dates: start: 20210528, end: 20210915
  6. SPRAVATO [Suspect]
     Active Substance: ESKETAMINE
     Dosage: REINTRODUCTION
     Dates: start: 20211015, end: 20211224
  7. SPRAVATO [Suspect]
     Active Substance: ESKETAMINE
  8. MIRTAZAPINE [Concomitant]
     Active Substance: MIRTAZAPINE
     Indication: Antidepressant therapy
     Dates: start: 20190101, end: 20190131
  9. MIRTAZAPINE [Concomitant]
     Active Substance: MIRTAZAPINE
     Dates: start: 20210325
  10. TOFRANIL [Concomitant]
     Active Substance: IMIPRAMINE HYDROCHLORIDE
     Dates: start: 20190101, end: 20190131
  11. LITHIUM [Concomitant]
     Active Substance: LITHIUM
     Indication: Antidepressant therapy
     Dates: start: 20201210, end: 20201228
  12. VENLAFAXINE [Concomitant]
     Active Substance: VENLAFAXINE HYDROCHLORIDE
     Dates: start: 20200101, end: 20200131
  13. PAROXETINE [Concomitant]
     Active Substance: PAROXETINE
     Indication: Antidepressant therapy
     Route: 048
     Dates: start: 20201229, end: 20210324
  14. TERALITHE [Concomitant]
     Active Substance: LITHIUM CARBONATE
     Indication: Affective disorder
     Dates: start: 20201210
  15. MOCLOBEMIDE [Concomitant]
     Active Substance: MOCLOBEMIDE
     Indication: Antidepressant therapy
     Dates: start: 20201204, end: 20201228
  16. MOCLOBEMIDE [Concomitant]
     Active Substance: MOCLOBEMIDE
     Dates: start: 20210325
  17. TRIMEPRAZINE [Concomitant]
     Active Substance: TRIMEPRAZINE
     Indication: Affective disorder
     Dates: start: 20201210
  18. LORMETAZEPAM [Concomitant]
     Active Substance: LORMETAZEPAM
     Indication: Insomnia
     Dates: start: 20201210

REACTIONS (19)
  - Suicidal ideation [Recovered/Resolved]
  - Gastrointestinal motility disorder [Recovered/Resolved]
  - Libido disorder [Recovered/Resolved]
  - Affect lability [Not Recovered/Not Resolved]
  - Weight decreased [Not Recovered/Not Resolved]
  - Psychiatric symptom [Recovered/Resolved]
  - Morbid thoughts [Not Recovered/Not Resolved]
  - Decreased appetite [Recovered/Resolved]
  - Off label use [Unknown]
  - Feeling guilty [Recovered/Resolved]
  - Anhedonia [Not Recovered/Not Resolved]
  - Personality change [Not Recovered/Not Resolved]
  - Insomnia [Not Recovered/Not Resolved]
  - Dissociative disorder [Recovered/Resolved]
  - Anxiety [Not Recovered/Not Resolved]
  - Depressed mood [Not Recovered/Not Resolved]
  - Irritability [Not Recovered/Not Resolved]
  - Drug ineffective [Unknown]
  - Inappropriate schedule of product administration [Unknown]

NARRATIVE: CASE EVENT DATE: 20201230
